FAERS Safety Report 16489161 (Version 1)
Quarter: 2019Q2

REPORT INFORMATION
  Report Type: Spontaneous
  Country: US (occurrence: US)
  Receive Date: 20190628
  Receipt Date: 20190628
  Transmission Date: 20190711
  Serious: No
  Sender: FDA-Public Use
  Company Number: US-ACCORD-068934

PATIENT
  Age: 57 Year
  Sex: Female
  Weight: 54.43 kg

DRUGS (2)
  1. ATENOLOL/ATENOLOL HYDROCHLORIDE [Concomitant]
  2. CLONAZEPAM. [Suspect]
     Active Substance: CLONAZEPAM
     Indication: ANXIETY
     Dosage: STRENGTH: 1 MG, 1/2 TABLET TWICE DAILY
     Route: 048
     Dates: start: 20180430, end: 201805

REACTIONS (4)
  - Thinking abnormal [Recovering/Resolving]
  - Feeling abnormal [Recovering/Resolving]
  - Aggression [Recovering/Resolving]
  - Nervousness [Recovering/Resolving]
